FAERS Safety Report 17415125 (Version 1)
Quarter: 2020Q1

REPORT INFORMATION
  Report Type: Report from Study
  Country: GB (occurrence: GB)
  Receive Date: 20200213
  Receipt Date: 20200213
  Transmission Date: 20200409
  Serious: Yes (Other)
  Sender: FDA-Public Use
  Company Number: GB-PFIZER INC-2020055960

PATIENT
  Age: 21 Year
  Sex: Female

DRUGS (3)
  1. BACTERIOSTATIC SODIUM CHLORIDE [Suspect]
     Active Substance: SODIUM CHLORIDE
     Indication: CATHETER MANAGEMENT
     Dosage: UNK (SALINE FLUSH USING PUSH/PAUSE TECHNIQUE)
     Route: 042
     Dates: start: 20200112
  2. TAUROLOCK [Suspect]
     Active Substance: TAUROLIDINE
     Dosage: UNK (FROM APPROXIMATELY 2 YEARS)
     Route: 065
  3. TAUROLOCK [Suspect]
     Active Substance: TAUROLIDINE
     Dosage: UNK
     Route: 042
     Dates: start: 20200112

REACTIONS (12)
  - Wheezing [Recovering/Resolving]
  - Retching [Recovering/Resolving]
  - Head discomfort [Recovering/Resolving]
  - Salivary hypersecretion [Recovering/Resolving]
  - Urticaria [Recovering/Resolving]
  - Headache [Recovering/Resolving]
  - Tremor [Recovering/Resolving]
  - Exophthalmos [Recovering/Resolving]
  - Pulse abnormal [Recovering/Resolving]
  - Anxiety [Recovering/Resolving]
  - Flushing [Recovering/Resolving]
  - Productive cough [Recovering/Resolving]

NARRATIVE: CASE EVENT DATE: 20200112
